FAERS Safety Report 9210418 (Version 2)
Quarter: 2013Q2

REPORT INFORMATION
  Report Type: Spontaneous
  Country: CO (occurrence: CO)
  Receive Date: 20130404
  Receipt Date: 20130417
  Transmission Date: 20140414
  Serious: Yes (Other)
  Sender: FDA-Public Use
  Company Number: CO-JNJFOC-20130315925

PATIENT
  Age: 40 Year
  Sex: Female

DRUGS (3)
  1. RISPERDAL CONSTA [Suspect]
     Indication: SCHIZOPHRENIA
     Route: 030
     Dates: start: 201204
  2. LITHIUM [Concomitant]
     Route: 065
  3. SINOGAN [Concomitant]
     Route: 065

REACTIONS (1)
  - Blood prolactin abnormal [Unknown]
